FAERS Safety Report 5398872-X (Version None)
Quarter: 2007Q3

REPORT INFORMATION
  Report Type: 
  Country: None (occurrence: None)
  Receive Date: 20070727
  Receipt Date: 20070723
  Transmission Date: 20080115
  Serious: Yes (Other)
  Sender: FDA-Public Use
  Company Number: PHEH2007US05920

PATIENT
  Age: 21 Year
  Sex: Female

DRUGS (1)
  1. ZELNORM [Suspect]
     Indication: IRRITABLE BOWEL SYNDROME
     Dosage: 6 MG, BID
     Route: 048
     Dates: start: 20051101, end: 20061203

REACTIONS (5)
  - CHEST PAIN [None]
  - DIARRHOEA [None]
  - MOOD ALTERED [None]
  - OVARIAN CYST [None]
  - PAIN IN EXTREMITY [None]
